FAERS Safety Report 9196478 (Version 2)
Quarter: 2013Q2

REPORT INFORMATION
  Report Type: Spontaneous
  Country: US (occurrence: US)
  Receive Date: 20130328
  Receipt Date: 20130401
  Transmission Date: 20140414
  Serious: Yes (Other)
  Sender: FDA-Public Use
  Company Number: US-PFIZER INC-2013100059

PATIENT
  Age: 51 Year
  Sex: Female
  Weight: 81.63 kg

DRUGS (6)
  1. CHANTIX [Suspect]
     Indication: SMOKING CESSATION THERAPY
     Dosage: 0.5 MG, 1X/DAY
     Route: 048
     Dates: start: 2008
  2. LISINOPRIL [Concomitant]
     Indication: HYPERTENSION
     Dosage: UNK
  3. PAXIL [Concomitant]
     Indication: DEPRESSION
     Dosage: UNK
  4. LORAZEPAM [Concomitant]
     Indication: ANXIETY
     Dosage: UNK
  5. HYDROCODONE [Concomitant]
     Indication: ARTHROPATHY
     Dosage: UNK
  6. LIPITOR [Concomitant]
     Indication: BLOOD CHOLESTEROL INCREASED
     Dosage: UNK

REACTIONS (1)
  - Breast cancer female [Not Recovered/Not Resolved]
